FAERS Safety Report 24816415 (Version 1)
Quarter: 2025Q1

REPORT INFORMATION
  Report Type: Spontaneous
  Country: US (occurrence: US)
  Receive Date: 20250107
  Receipt Date: 20250107
  Transmission Date: 20250408
  Serious: Yes (Other)
  Sender: ADMA BIOLOGICS
  Company Number: US-ADMA BIOLOGICS INC.-US-2025ADM000013

PATIENT
  Age: 39 Year
  Sex: Male

DRUGS (2)
  1. HUMAN IMMUNOGLOBULIN G [Suspect]
     Active Substance: HUMAN IMMUNOGLOBULIN G
     Indication: SJS-TEN overlap
     Route: 042
  2. ETANERCEPT [Suspect]
     Active Substance: ETANERCEPT
     Indication: SJS-TEN overlap
     Route: 042

REACTIONS (6)
  - Melaena [Unknown]
  - Oesophageal candidiasis [Unknown]
  - Herpes simplex oesophagitis [Unknown]
  - Clostridium difficile colitis [Unknown]
  - Abdominal pain [Unknown]
  - Off label use [Unknown]
